FAERS Safety Report 14375385 (Version 1)
Quarter: 2018Q1

REPORT INFORMATION
  Report Type: Spontaneous
  Country: US (occurrence: US)
  Receive Date: 20180110
  Receipt Date: 20180110
  Transmission Date: 20180509
  Serious: Yes (Other)
  Sender: FDA-Public Use
  Company Number: None

PATIENT
  Age: 76 Year
  Sex: Female
  Weight: 81.65 kg

DRUGS (11)
  1. GABAPENTIN 100MG CAPSULE [Suspect]
     Active Substance: GABAPENTIN
     Indication: NEURALGIA
     Dosage: 1 CAPSULE BEGAN ONCE DAILY, THEN TWICE, THEN STOPPED GRADUALLY, THEN ONE AT 7 PM, THEN WEANED OFF
     Route: 048
     Dates: start: 20171010, end: 20171219
  2. GABAPENTIN 100MG CAPSULE [Suspect]
     Active Substance: GABAPENTIN
     Indication: PARAESTHESIA
     Dosage: 1 CAPSULE BEGAN ONCE DAILY, THEN TWICE, THEN STOPPED GRADUALLY, THEN ONE AT 7 PM, THEN WEANED OFF
     Route: 048
     Dates: start: 20171010, end: 20171219
  3. GABAPENTIN 100MG CAPSULE [Suspect]
     Active Substance: GABAPENTIN
     Indication: PAIN
     Dosage: 1 CAPSULE BEGAN ONCE DAILY, THEN TWICE, THEN STOPPED GRADUALLY, THEN ONE AT 7 PM, THEN WEANED OFF
     Route: 048
     Dates: start: 20171010, end: 20171219
  4. ASPIRIN. [Concomitant]
     Active Substance: ASPIRIN
  5. LAXATIVE SUPPOSITORIES [Concomitant]
  6. INDERAL [Concomitant]
     Active Substance: PROPRANOLOL HYDROCHLORIDE
  7. ESTRADIOL. [Concomitant]
     Active Substance: ESTRADIOL
  8. ANTACID [Concomitant]
     Active Substance: ALUMINUM HYDROXIDE\CALCIUM CARBONATE\DIMETHICONE\MAGNESIUM HYDROXIDE
  9. CALCIUM MAGNESIUM ZINC VITAMIN [Concomitant]
  10. XANAX [Concomitant]
     Active Substance: ALPRAZOLAM
  11. CABERGOLINE. [Concomitant]
     Active Substance: CABERGOLINE

REACTIONS (3)
  - Faeces pale [None]
  - Aspartate aminotransferase increased [None]
  - Liver injury [None]

NARRATIVE: CASE EVENT DATE: 20171218
